FAERS Safety Report 8607239 (Version 4)
Quarter: 2014Q2

REPORT INFORMATION
  Report Type: Spontaneous
  Country: US (occurrence: US)
  Receive Date: 20120611
  Receipt Date: 20140417
  Transmission Date: 20141212
  Serious: Yes (Disabling, Other)
  Sender: FDA-Public Use
  Company Number: US-ASTRAZENECA-2012SE35927

PATIENT
  Age: 30 Year
  Sex: Female

DRUGS (29)
  1. NEXIUM [Suspect]
     Indication: GASTROOESOPHAGEAL REFLUX DISEASE
     Dosage: 1-2 TIMES DAILY
     Route: 048
     Dates: start: 2000
  2. NEXIUM [Suspect]
     Indication: GASTROOESOPHAGEAL REFLUX DISEASE
     Route: 048
     Dates: start: 20080117
  3. NEXIUM [Suspect]
     Indication: GASTROOESOPHAGEAL REFLUX DISEASE
     Route: 048
     Dates: start: 20110218
  4. PRILOSEC [Suspect]
     Dosage: ONCE DAILY
     Route: 048
     Dates: start: 2001, end: 2004
  5. PEPCID [Concomitant]
     Dates: start: 2000
  6. TAGAMET [Concomitant]
     Dates: start: 2001
  7. TUMS [Concomitant]
     Dosage: 4 TIMES DAILY
     Dates: start: 2004
  8. NORVASC [Concomitant]
  9. NORVASC [Concomitant]
     Route: 048
     Dates: start: 20111111
  10. LISINOPRIL [Concomitant]
  11. LISINOPRIL [Concomitant]
     Route: 048
     Dates: start: 20111111
  12. PANTOL [Concomitant]
  13. TRAMADOL [Concomitant]
  14. TRAMADOL [Concomitant]
     Route: 048
     Dates: start: 20110713
  15. LORATADINE [Concomitant]
  16. FUROSEMINE/LASIX [Concomitant]
  17. FUROSEMINE/LASIX [Concomitant]
     Route: 048
     Dates: start: 20110414
  18. XOPENEX [Concomitant]
  19. CHANTIX [Concomitant]
     Dates: start: 20080117
  20. VALTREX [Concomitant]
     Route: 048
     Dates: start: 20130309
  21. CYCLOBENZAPRINE [Concomitant]
     Route: 048
     Dates: start: 20130523
  22. LEXAPRO [Concomitant]
     Route: 048
     Dates: start: 20121003
  23. VITAMIN D2 [Concomitant]
     Dates: start: 20121207
  24. ALLEGRA [Concomitant]
     Route: 048
     Dates: start: 20120412
  25. AMBIEN [Concomitant]
     Dates: start: 20120518
  26. CYMBALTA [Concomitant]
     Route: 048
     Dates: start: 20110125
  27. DIFLUCAN [Concomitant]
     Route: 048
     Dates: start: 20110125
  28. BENICAR [Concomitant]
     Route: 048
     Dates: start: 20110125
  29. CETRIZINE [Concomitant]
     Route: 048
     Dates: start: 20110304

REACTIONS (14)
  - Osteoporosis [Unknown]
  - Essential hypertension [Unknown]
  - Type 2 diabetes mellitus [Unknown]
  - Diabetic nephropathy [Unknown]
  - Wrist fracture [Unknown]
  - Forearm fracture [Unknown]
  - Bone disorder [Unknown]
  - Arthritis [Unknown]
  - Osteoarthritis [Unknown]
  - Road traffic accident [Unknown]
  - Ulna fracture [Unknown]
  - Fall [Unknown]
  - Back pain [Unknown]
  - Depression [Unknown]
